FAERS Safety Report 5164897-2 (Version None)
Quarter: 2006Q4

REPORT INFORMATION
  Report Type: 
  Country: None (occurrence: None)
  Receive Date: 20061124
  Receipt Date: 20061109
  Transmission Date: 20070319
  Serious: Yes (Other)
  Sender: FDA-Public Use
  Company Number: 8020268

PATIENT
  Age: 41 Year
  Sex: Male
  Weight: 72 kg

DRUGS (4)
  1. KEPPRA [Suspect]
     Indication: EPILEPSY
     Dosage: 1500 MG 2/D PO
     Route: 048
     Dates: start: 20040601
  2. TEMODAL [Suspect]
     Indication: BRAIN NEOPLASM
     Dosage: 100 MG 1/D PO
     Route: 048
     Dates: start: 20050401, end: 20060401
  3. LAMICTAL [Suspect]
     Indication: EPILEPSY
     Dosage: 100 MG 3/D PO
     Route: 048
     Dates: start: 20040601
  4. BACTRIM [Suspect]
     Dosage: 1 DF 3/W PO
     Route: 048
     Dates: start: 20040601

REACTIONS (1)
  - PANCYTOPENIA [None]
